FAERS Safety Report 8092772-2 (Version None)
Quarter: 2012Q1

REPORT INFORMATION
  Report Type: 
  Country: None (occurrence: None)
  Receive Date: 20120128
  Receipt Date: 20110813
  Transmission Date: 20120608
  Serious: No
  Sender: FDA-Public Use
  Company Number: US-ABBOTT-11P-163-0846146-00

PATIENT
  Age: 18 Year
  Sex: Male

DRUGS (3)
  1. LIALDA [Concomitant]
     Indication: CROHN'S DISEASE
  2. VITAMIN D SUPPLEMENT [Concomitant]
     Indication: PRODUCT USED FOR UNKNOWN INDICATION
  3. HUMIRA [Suspect]
     Indication: CROHN'S DISEASE
     Dates: start: 20110701

REACTIONS (4)
  - RHINORRHOEA [None]
  - COUGH [None]
  - UPPER RESPIRATORY TRACT CONGESTION [None]
  - OROPHARYNGEAL PAIN [None]
